FAERS Safety Report 9355285 (Version 2)
Quarter: 2013Q3

REPORT INFORMATION
  Report Type: Spontaneous
  Country: US (occurrence: US)
  Receive Date: 20130619
  Receipt Date: 20130726
  Transmission Date: 20140515
  Serious: No
  Sender: FDA-Public Use
  Company Number: US-PFIZER INC-2013182767

PATIENT
  Age: 82 Year
  Sex: Female
  Weight: 90.7 kg

DRUGS (4)
  1. LYRICA [Suspect]
     Indication: NEUROPATHY PERIPHERAL
     Dosage: 50 MG, 1X/DAY
     Dates: start: 20130526
  2. LYRICA [Suspect]
     Indication: PAIN IN EXTREMITY
     Dosage: 50 MG, 2X/DAY
     Dates: start: 201306
  3. LYRICA [Suspect]
     Dosage: 50 MG, 3X/DAY
     Dates: start: 201306, end: 20130611
  4. LYRICA [Suspect]
     Dosage: UNK
     Route: 048
     Dates: start: 2013, end: 2013

REACTIONS (8)
  - Local swelling [Recovering/Resolving]
  - Pain in extremity [Recovered/Resolved]
  - Weight increased [Unknown]
  - Weight decreased [Unknown]
  - Malaise [Unknown]
  - Activities of daily living impaired [Unknown]
  - Confusional state [Recovering/Resolving]
  - Memory impairment [Unknown]
